FAERS Safety Report 24810086 (Version 1)
Quarter: 2025Q1

REPORT INFORMATION
  Report Type: Spontaneous
  Country: US (occurrence: None)
  Receive Date: 20250106
  Receipt Date: 20250106
  Transmission Date: 20250409
  Serious: Yes (Hospitalization)
  Sender: FDA-CTU
  Company Number: None

PATIENT
  Sex: Female

DRUGS (4)
  1. EPOPROSTENOL [Suspect]
     Active Substance: EPOPROSTENOL
     Indication: Pulmonary arterial hypertension
     Route: 042
     Dates: start: 202206
  2. DEVICE [Concomitant]
     Active Substance: DEVICE
  3. SODIUM CHLOR INJ (1000ML/BAG) [Concomitant]
  4. WINREVAIR [Concomitant]
     Active Substance: SOTATERCEPT-CSRK

REACTIONS (6)
  - Vascular device infection [None]
  - Infusion site erythema [None]
  - Infusion site swelling [None]
  - Infusion site pain [None]
  - Infusion site discharge [None]
  - Medical device site odour [None]
